FAERS Safety Report 4603198-5 (Version None)
Quarter: 2005Q1

REPORT INFORMATION
  Report Type: 
  Country: None (occurrence: None)
  Receive Date: 20050307
  Receipt Date: 20050225
  Transmission Date: 20050727
  Serious: Yes (Hospitalization)
  Sender: FDA-Public Use
  Company Number: 2005-02-1555

PATIENT
  Age: 33 Year
  Sex: Female

DRUGS (4)
  1. CELESTENE       (BETAMETHASONE) [Suspect]
     Indication: SINUSITIS
     Dosage: ORAL
     Route: 048
     Dates: start: 20041222, end: 20041225
  2. DAFALGAN [Suspect]
     Indication: SINUSITIS
     Dosage: ORAL
     Route: 048
     Dates: start: 20041222, end: 20041225
  3. ORELOX (CEFPODOXINE PROXETIL) [Suspect]
     Indication: SINUSITIS
     Dosage: ORAL
     Route: 048
     Dates: start: 20041222, end: 20041225
  4. HEXASPRAY BUCCAL [Suspect]
     Indication: SINUSITIS
     Dosage: BUCCAL
     Route: 002
     Dates: start: 20041222, end: 20041225

REACTIONS (9)
  - BURNING SENSATION [None]
  - CHEILITIS [None]
  - ERYTHEMA MULTIFORME [None]
  - FEELING HOT [None]
  - GLOSSITIS [None]
  - LEUKOCYTOSIS [None]
  - NEUTROPHIL COUNT INCREASED [None]
  - PRURITUS [None]
  - SKIN EXFOLIATION [None]
